FAERS Safety Report 23382834 (Version 1)
Quarter: 2024Q1

REPORT INFORMATION
  Report Type: Spontaneous
  Country: US (occurrence: US)
  Receive Date: 20240109
  Receipt Date: 20240109
  Transmission Date: 20240409
  Serious: No
  Sender: FDA-Public Use
  Company Number: US-OCULAR THERAPEUTIX-2023OCX00044

PATIENT
  Sex: Male

DRUGS (3)
  1. DEXTENZA [Suspect]
     Active Substance: DEXAMETHASONE
     Indication: Eye inflammation
     Dosage: 0.4 MG, SINGLE, LACRIMAL CANALICULAR INSERTION
     Route: 047
     Dates: start: 20231114
  2. DEXTENZA [Suspect]
     Active Substance: DEXAMETHASONE
     Indication: Eye inflammation
  3. DEXTENZA [Suspect]
     Active Substance: DEXAMETHASONE
     Indication: Cataract operation complication

REACTIONS (1)
  - Dacryocystitis [Unknown]

NARRATIVE: CASE EVENT DATE: 20231119
